FAERS Safety Report 6163127-2 (Version None)
Quarter: 2009Q2

REPORT INFORMATION
  Report Type: 
  Country: None (occurrence: None)
  Receive Date: 20090422
  Receipt Date: 20090417
  Transmission Date: 20091009
  Serious: Yes (Other)
  Sender: FDA-Public Use
  Company Number: US-JNJFOC-20090404826

PATIENT
  Age: 66 Year
  Sex: Female
  Weight: 68.95 kg

DRUGS (7)
  1. ELMIRON [Suspect]
     Route: 048
  2. ELMIRON [Suspect]
     Indication: CYSTITIS INTERSTITIAL
     Route: 048
  3. NEURONTIN [Concomitant]
     Indication: INFLAMMATION
     Route: 048
  4. SINGULAIR [Concomitant]
     Indication: ASTHMA
     Route: 048
  5. ZYRTEC [Concomitant]
     Indication: MULTIPLE ALLERGIES
     Route: 048
  6. INHALER [Concomitant]
     Indication: ASTHMA
     Route: 048
  7. VALIUM [Concomitant]
     Indication: MUSCLE RELAXANT THERAPY
     Route: 067

REACTIONS (2)
  - ALOPECIA [None]
  - WEIGHT INCREASED [None]
